FAERS Safety Report 4416167-5 (Version None)
Quarter: 2004Q2

REPORT INFORMATION
  Report Type: 
  Country: None (occurrence: None)
  Receive Date: 20040623
  Receipt Date: 20040426
  Transmission Date: 20050107
  Serious: No
  Sender: FDA-Public Use
  Company Number: WAES 0404USA02214

PATIENT

DRUGS (1)
  1. INVANZ [Suspect]
     Dosage: 1 GM/IV
     Route: 042

REACTIONS (1)
  - HEPATITIS [None]
